FAERS Safety Report 24580134 (Version 1)
Quarter: 2024Q4

REPORT INFORMATION
  Report Type: Spontaneous
  Country: JP (occurrence: JP)
  Receive Date: 20241105
  Receipt Date: 20241105
  Transmission Date: 20250115
  Serious: Yes (Other)
  Sender: ALEXION PHARMACEUTICALS
  Company Number: JP-ASTRAZENECA-240119051_061310_P_1

PATIENT
  Age: 7 Decade

DRUGS (7)
  1. CRESTOR [Suspect]
     Active Substance: ROSUVASTATIN CALCIUM
     Dosage: 2.5 MG , UNKNOWN
  2. INSULIN NOS [Concomitant]
     Active Substance: INSULIN NOS
  3. SACUBITRIL [Concomitant]
     Active Substance: SACUBITRIL
  4. DOXAZOSIN [Concomitant]
     Active Substance: DOXAZOSIN\DOXAZOSIN MESYLATE
  5. AMLODIPINE [Concomitant]
     Active Substance: AMLODIPINE BESYLATE
  6. FUROSEMIDE [Concomitant]
     Active Substance: FUROSEMIDE
  7. VONOPRAZAN FUMARATE [Concomitant]
     Active Substance: VONOPRAZAN FUMARATE

REACTIONS (7)
  - Acute myocardial infarction [Unknown]
  - Cardiac failure acute [Recovered/Resolved]
  - Low cardiac output syndrome [Unknown]
  - Presyncope [Recovered/Resolved]
  - Cardiac perforation [Unknown]
  - Cardiogenic shock [Unknown]
  - Back pain [Unknown]
